FAERS Safety Report 7039614-1 (Version None)
Quarter: 2010Q4

REPORT INFORMATION
  Report Type: 
  Country: None (occurrence: None)
  Receive Date: 20101012
  Receipt Date: 20101005
  Transmission Date: 20110411
  Serious: Yes (Hospitalization, Disabling, Other)
  Sender: FDA-Public Use
  Company Number: A0880313A

PATIENT
  Age: 68 Year
  Sex: Female

DRUGS (9)
  1. ALKERAN [Suspect]
     Indication: MULTIPLE MYELOMA
     Dosage: 1INJ SINGLE DOSE
     Route: 042
     Dates: start: 20100824, end: 20100824
  2. ACYCLOVIR SODIUM [Concomitant]
  3. CEFEPIME [Concomitant]
  4. NEUPOGEN [Concomitant]
  5. LEVOTHYROXINE SODIUM [Concomitant]
  6. METRONIDAZOLE [Concomitant]
  7. OMEPRAZOLE [Concomitant]
  8. PROCHLORPERAZINE [Concomitant]
  9. CLONAZEPAM [Concomitant]

REACTIONS (1)
  - MYOCLONUS [None]
